FAERS Safety Report 25202714 (Version 1)
Quarter: 2025Q2

REPORT INFORMATION
  Report Type: Spontaneous
  Country: US (occurrence: None)
  Receive Date: 20250416
  Receipt Date: 20250416
  Transmission Date: 20250717
  Serious: Yes (Hospitalization)
  Sender: FDA-CTU
  Company Number: None

PATIENT
  Age: 71 Year
  Sex: Female
  Weight: 51.4 kg

DRUGS (1)
  1. FEMARA [Suspect]
     Active Substance: LETROZOLE

REACTIONS (7)
  - Diarrhoea [None]
  - Vomiting [None]
  - Abdominal pain [None]
  - Abdominal pain [None]
  - Nausea [None]
  - Feeding disorder [None]
  - Therapy interrupted [None]

NARRATIVE: CASE EVENT DATE: 20250215
